FAERS Safety Report 6722478-0 (Version None)
Quarter: 2010Q2

REPORT INFORMATION
  Report Type: 
  Country: None (occurrence: None)
  Receive Date: 20100512
  Receipt Date: 20100429
  Transmission Date: 20101027
  Serious: Yes (Hospitalization)
  Sender: FDA-Public Use
  Company Number: NL-GENENTECH-301331

PATIENT
  Sex: Female

DRUGS (21)
  1. RITUXIMAB [Suspect]
     Indication: DIFFUSE LARGE B-CELL LYMPHOMA
     Dosage: 700 MG, Q2W
     Route: 042
     Dates: start: 20081007
  2. RITUXIMAB [Suspect]
     Dosage: 700 UNK, UNK
     Route: 042
     Dates: start: 20090208
  3. RITUXIMAB [Suspect]
     Dosage: 700 UNK, UNK
     Route: 042
     Dates: start: 20090415
  4. RITUXIMAB [Suspect]
     Dosage: 700 UNK, UNK
     Route: 042
     Dates: start: 20090610
  5. RITUXIMAB [Suspect]
     Dosage: 700 UNK, UNK
     Route: 042
     Dates: start: 20090805
  6. RITUXIMAB [Suspect]
     Dosage: 700 UNK, UNK
     Route: 042
     Dates: start: 20091008
  7. RITUXIMAB [Suspect]
     Dosage: 700 UNK, UNK
     Route: 042
     Dates: start: 20091207
  8. PREDNISONE [Suspect]
     Indication: DIFFUSE LARGE B-CELL LYMPHOMA
     Dosage: 100 MG, UNK
     Route: 048
     Dates: start: 20081007
  9. CYCLOPHOSPHAMIDE [Suspect]
     Indication: DIFFUSE LARGE B-CELL LYMPHOMA
     Dosage: 1300 MG, Q2W
     Route: 042
     Dates: start: 20081007
  10. VINCRISTINE [Suspect]
     Indication: DIFFUSE LARGE B-CELL LYMPHOMA
     Dosage: 2 MG, Q2W
     Route: 042
     Dates: start: 20081007
  11. DOXORUBICIN HCL [Suspect]
     Indication: DIFFUSE LARGE B-CELL LYMPHOMA
     Dosage: 89 MG, Q2W
     Route: 042
     Dates: start: 20081007
  12. NEUPOGEN [Suspect]
     Indication: DIFFUSE LARGE B-CELL LYMPHOMA
     Dosage: UNK
     Route: 058
     Dates: start: 20090122
  13. METFORMIN HCL [Concomitant]
     Indication: DIABETES MELLITUS
     Dosage: 500 MG, UNK
     Route: 048
     Dates: start: 20081006
  14. GLICLAZIDE [Concomitant]
     Indication: DIABETES MELLITUS
     Dosage: UNK
     Route: 048
     Dates: start: 20081006
  15. INSULATARD [Concomitant]
     Indication: DIABETES MELLITUS
     Dosage: UNK
     Route: 058
     Dates: start: 20081118
  16. VALACICLOVIR [Concomitant]
     Indication: ANTIVIRAL PROPHYLAXIS
     Dosage: 500 MG, UNK
     Route: 048
     Dates: start: 20081118
  17. FLUCONAZOLE [Concomitant]
     Indication: CANDIDIASIS
     Dosage: UNK
     Route: 048
     Dates: start: 20081118
  18. NEXIUM [Concomitant]
     Indication: DRUG USE FOR UNKNOWN INDICATION
     Dosage: UNK
     Route: 048
  19. COTRIM [Concomitant]
     Indication: PROPHYLAXIS
     Dosage: UNK
     Route: 048
     Dates: start: 20081104
  20. ROSUVASTATIN [Concomitant]
     Indication: HYPERCHOLESTEROLAEMIA
     Dosage: 10 MG, UNK
     Route: 048
  21. NOVOMIX [Concomitant]
     Indication: DIABETES MELLITUS
     Dosage: UNK
     Route: 058

REACTIONS (1)
  - LUNG ADENOCARCINOMA [None]
